FAERS Safety Report 9168118 (Version 1)
Quarter: 2013Q1

REPORT INFORMATION
  Report Type: Spontaneous
  Country: GB (occurrence: None)
  Receive Date: 20130307
  Receipt Date: 20130307
  Transmission Date: 20140127
  Serious: Yes (Hospitalization, Other)
  Sender: FDA-Public Use
  Company Number: AUR-APL-2013-01847

PATIENT
  Age: 23 Year
  Sex: Male

DRUGS (10)
  1. RISPERIDONE [Suspect]
     Indication: SCHIZOAFFECTIVE DISORDER
  2. OLANZAPINE (OLANZAPINE) [Suspect]
     Indication: SCHIZOAFFECTIVE DISORDER
  3. AMISULPRIDE [Suspect]
     Indication: SCHIZOAFFECTIVE DISORDER
  4. QUETIAPINE [Suspect]
     Indication: SCHIZOAFFECTIVE DISORDER
  5. SODIUM VALPROATE [Suspect]
     Indication: SCHIZOAFFECTIVE DISORDER
  6. HALOPERIDOL [Suspect]
     Indication: SCHIZOAFFECTIVE DISORDER
  7. CLOPIXOL [Suspect]
     Indication: SCHIZOAFFECTIVE DISORDER
  8. ARIPIPRAZOLE [Suspect]
     Indication: SCHIZOAFFECTIVE DISORDER
  9. ZUCLOPENTHIXOL [Suspect]
     Indication: SCHIZOAFFECTIVE DISORDER
  10. LITHIUM (LITHIUM) UNKNOWN [Concomitant]

REACTIONS (9)
  - No therapeutic response [None]
  - Weight increased [None]
  - Agranulocytosis [None]
  - Extrapyramidal disorder [None]
  - Tachycardia [None]
  - Neutrophil count decreased [None]
  - Oropharyngeal pain [None]
  - Periorbital cellulitis [None]
  - Refusal of treatment by patient [None]
